FAERS Safety Report 8345640-2 (Version None)
Quarter: 2012Q2

REPORT INFORMATION
  Report Type: 
  Country: None (occurrence: None)
  Receive Date: 20120508
  Receipt Date: 20120430
  Transmission Date: 20120825
  Serious: Yes (Hospitalization, Disabling, Other)
  Sender: FDA-Public Use
  Company Number: US-MERCK-1110USA00450

PATIENT
  Age: 46 Year
  Sex: Female
  Weight: 45 kg

DRUGS (8)
  1. MAGNESIUM (UNSPECIFIED) [Concomitant]
     Route: 065
     Dates: start: 19800101
  2. HORMONES (UNSPECIFIED) [Concomitant]
     Route: 065
     Dates: start: 19900101, end: 20070801
  3. FORTICAL (CALCIUM CARBONATE) [Concomitant]
     Indication: OSTEOPOROSIS
     Route: 065
     Dates: start: 19880101
  4. FOSAMAX PLUS D [Suspect]
     Indication: OSTEOPOROSIS
     Route: 048
     Dates: start: 20070418, end: 20091001
  5. CALCIUM (UNSPECIFIED) [Concomitant]
     Route: 065
     Dates: start: 19800101
  6. FOSAMAX [Suspect]
     Indication: OSTEOPOROSIS
     Route: 048
     Dates: start: 19950101, end: 20030301
  7. VITAMIN D (UNSPECIFIED) [Concomitant]
     Route: 065
     Dates: start: 19800101
  8. FOSAMAX [Suspect]
     Route: 048
     Dates: start: 20030301, end: 20070301

REACTIONS (23)
  - MUSCULOSKELETAL STIFFNESS [None]
  - OSTEOPOROSIS [None]
  - DEPRESSION [None]
  - STRESS FRACTURE [None]
  - IMPAIRED HEALING [None]
  - FEMUR FRACTURE [None]
  - FALL [None]
  - COMPRESSION FRACTURE [None]
  - BLOOD CHOLESTEROL INCREASED [None]
  - LIMB ASYMMETRY [None]
  - KYPHOSCOLIOSIS [None]
  - FOOT FRACTURE [None]
  - DEVICE FAILURE [None]
  - BREAST CANCER [None]
  - HUMERUS FRACTURE [None]
  - FRACTURE NONUNION [None]
  - OSTEOARTHRITIS [None]
  - HYPERCHOLESTEROLAEMIA [None]
  - BODY HEIGHT DECREASED [None]
  - ARTHROPATHY [None]
  - OSTEONECROSIS [None]
  - GASTROOESOPHAGEAL REFLUX DISEASE [None]
  - CONSTIPATION [None]
